FAERS Safety Report 10155056 (Version 3)
Quarter: 2014Q2

REPORT INFORMATION
  Report Type: Spontaneous
  Country: US (occurrence: US)
  Receive Date: 20140506
  Receipt Date: 20140619
  Transmission Date: 20141212
  Serious: Yes (Hospitalization)
  Sender: FDA-Public Use
  Company Number: US-VIROPHARMA INCORPORATED-20140428CINRY6267

PATIENT
  Age: 9 Year
  Sex: Female
  Weight: 31.2 kg

DRUGS (8)
  1. CINRYZE [Suspect]
     Indication: HEREDITARY ANGIOEDEMA
     Dosage: 1000 UNITS, 1X/WEEK
     Route: 042
     Dates: start: 201311
  2. CINRYZE [Suspect]
     Indication: PROPHYLAXIS
  3. ALBUTEROL [Concomitant]
     Indication: ASTHMA
     Route: 055
  4. FLUTICASONE [Concomitant]
     Indication: ASTHMA
     Route: 055
  5. SINGULAIR [Concomitant]
     Indication: ASTHMA
     Route: 048
  6. FLONASE [Concomitant]
     Indication: RHINITIS ALLERGIC
     Route: 045
  7. AUGMENTIN [Concomitant]
     Indication: SINUSITIS
     Dosage: UNKNOWN
     Route: 048
  8. AZITHROMYCIN [Concomitant]
     Indication: PRODUCT USED FOR UNKNOWN INDICATION
     Route: 048

REACTIONS (9)
  - Vision blurred [Recovered/Resolved]
  - Syncope [Recovered/Resolved]
  - Drug dose omission [Unknown]
  - Inappropriate schedule of drug administration [Not Recovered/Not Resolved]
  - Off label use [Not Recovered/Not Resolved]
  - Bronchitis [Unknown]
  - Mycoplasma infection [Unknown]
  - Sinusitis [Unknown]
  - Asthma [Unknown]
